FAERS Safety Report 19024231 (Version 1)
Quarter: 2021Q1

REPORT INFORMATION
  Report Type: Report from Study
  Country: US (occurrence: US)
  Receive Date: 20210318
  Receipt Date: 20210318
  Transmission Date: 20210420
  Serious: Yes (Hospitalization)
  Sender: FDA-Public Use
  Company Number: US-JNJFOC-20210327029

PATIENT
  Age: 81 Year
  Sex: Female

DRUGS (2)
  1. RIVAROXABAN [Suspect]
     Active Substance: RIVAROXABAN
     Indication: HAEMORRHAGE INTRACRANIAL
     Dosage: 15 MG, QD
     Route: 048
  2. MELOXICAM. [Interacting]
     Active Substance: MELOXICAM

REACTIONS (3)
  - Subdural haemorrhage [Unknown]
  - Labelled drug-drug interaction medication error [Unknown]
  - Subarachnoid haemorrhage [Unknown]
